FAERS Safety Report 22166451 (Version 13)
Quarter: 2024Q3

REPORT INFORMATION
  Report Type: Report from Study
  Country: US (occurrence: US)
  Receive Date: 20230403
  Receipt Date: 20240830
  Transmission Date: 20241016
  Serious: Yes (Hospitalization)
  Sender: NOVARTIS
  Company Number: US-002147023-NVSC2023US071925

PATIENT

DRUGS (1)
  1. KESIMPTA [Suspect]
     Active Substance: OFATUMUMAB
     Indication: Relapsing multiple sclerosis
     Dosage: UNK, QW
     Route: 058

REACTIONS (21)
  - Multiple sclerosis relapse [Unknown]
  - Seizure [Unknown]
  - Dyspnoea [Unknown]
  - Balance disorder [Unknown]
  - Speech disorder [Unknown]
  - Gait inability [Not Recovered/Not Resolved]
  - Pain [Unknown]
  - Muscular weakness [Unknown]
  - Somnolence [Unknown]
  - Fatigue [Unknown]
  - Back pain [Unknown]
  - Hypoaesthesia [Unknown]
  - Asthenia [Unknown]
  - Musculoskeletal stiffness [Unknown]
  - Decreased appetite [Unknown]
  - Headache [Unknown]
  - Migraine [Unknown]
  - Condition aggravated [Unknown]
  - Device malfunction [Unknown]
  - Product dose omission in error [Unknown]
  - Incorrect dose administered [Unknown]
